FAERS Safety Report 6200919-5 (Version None)
Quarter: 2009Q2

REPORT INFORMATION
  Report Type: 
  Country: None (occurrence: None)
  Receive Date: 20090523
  Receipt Date: 20081117
  Transmission Date: 20091009
  Serious: No
  Sender: FDA-Public Use
  Company Number: US-ALEXION-A200800341

PATIENT
  Sex: Male

DRUGS (11)
  1. SOLIRIS [Suspect]
     Dosage: 600 MG, QW
     Route: 042
     Dates: start: 20070521, end: 20070611
  2. SOLIRIS [Suspect]
     Dosage: 900 MG, SINGLE
     Route: 042
     Dates: start: 20070618, end: 20070618
  3. SOLIRIS [Suspect]
     Dosage: 900 MG, QW
     Route: 042
     Dates: start: 20080908, end: 20081006
  4. SOLIRIS [Suspect]
     Dosage: 900 MG, SINGLE
     Route: 042
     Dates: start: 20081022, end: 20081022
  5. SOLIRIS [Suspect]
     Dosage: 900 MG, SINGLE
     Route: 042
     Dates: start: 20081104, end: 20081104
  6. VITAMIN B12 /00056201/ [Concomitant]
  7. POTASSIUM CHLORIDE [Concomitant]
  8. FOLIC ACID [Concomitant]
  9. CALCITROL /00508501/ [Concomitant]
  10. PRILOSEC [Concomitant]
  11. ZANTAC /00550802/ [Concomitant]

REACTIONS (3)
  - ASTHENIA [None]
  - CHROMATURIA [None]
  - HAEMOGLOBIN DECREASED [None]
